FAERS Safety Report 20667474 (Version 3)
Quarter: 2022Q3

REPORT INFORMATION
  Report Type: Report from Study
  Country: GB (occurrence: GB)
  Receive Date: 20220404
  Receipt Date: 20220730
  Transmission Date: 20221027
  Serious: Yes (Hospitalization)
  Sender: FDA-Public Use
  Company Number: GB-BRISTOL-MYERS SQUIBB COMPANY-BMS-2021-144787

PATIENT
  Sex: Female
  Weight: 64.40 kg

DRUGS (13)
  1. REGORAFENIB [Suspect]
     Active Substance: REGORAFENIB
     Indication: Oesophageal squamous cell carcinoma stage II
     Route: 048
     Dates: start: 20210809, end: 20210822
  2. REGORAFENIB [Suspect]
     Active Substance: REGORAFENIB
     Route: 048
     Dates: start: 20210906, end: 20210926
  3. REGORAFENIB [Suspect]
     Active Substance: REGORAFENIB
     Route: 048
     Dates: start: 20211004, end: 20211024
  4. REGORAFENIB [Suspect]
     Active Substance: REGORAFENIB
     Route: 048
     Dates: start: 20211101, end: 20211121
  5. REGORAFENIB [Suspect]
     Active Substance: REGORAFENIB
     Route: 048
     Dates: start: 20211129, end: 20211219
  6. REGORAFENIB [Suspect]
     Active Substance: REGORAFENIB
     Route: 048
     Dates: start: 20211229, end: 20220118
  7. REGORAFENIB [Suspect]
     Active Substance: REGORAFENIB
     Route: 048
     Dates: start: 20220124, end: 20220213
  8. REGORAFENIB [Suspect]
     Active Substance: REGORAFENIB
     Route: 048
     Dates: start: 20220221, end: 20220313
  9. REGORAFENIB [Suspect]
     Active Substance: REGORAFENIB
     Route: 048
     Dates: start: 20220321, end: 20220410
  10. REGORAFENIB [Suspect]
     Active Substance: REGORAFENIB
     Route: 048
     Dates: start: 20220419, end: 20220509
  11. REGORAFENIB [Suspect]
     Active Substance: REGORAFENIB
     Route: 048
     Dates: start: 20220516, end: 20220605
  12. REGORAFENIB [Suspect]
     Active Substance: REGORAFENIB
     Route: 048
     Dates: start: 20220613, end: 20220704
  13. REGORAFENIB [Suspect]
     Active Substance: REGORAFENIB
     Route: 048
     Dates: start: 20220711, end: 20220711

REACTIONS (1)
  - Infection [Recovered/Resolved]

NARRATIVE: CASE EVENT DATE: 20210819
